FAERS Safety Report 19171325 (Version 2)
Quarter: 2021Q2

REPORT INFORMATION
  Report Type: Report from Study
  Country: SA (occurrence: SA)
  Receive Date: 20210423
  Receipt Date: 20210507
  Transmission Date: 20210717
  Serious: Yes (Other)
  Sender: FDA-Public Use
  Company Number: SA-EMD SERONO-9180128

PATIENT
  Age: 28 Year
  Sex: Female

DRUGS (2)
  1. REBIF [Suspect]
     Active Substance: INTERFERON BETA-1A
     Indication: MULTIPLE SCLEROSIS
     Dates: start: 20200712, end: 20200805
  2. REBIF [Suspect]
     Active Substance: INTERFERON BETA-1A
     Dates: start: 202104

REACTIONS (6)
  - Insomnia [Unknown]
  - Live birth [Recovered/Resolved]
  - Uterine cervix stenosis [Unknown]
  - Influenza like illness [Unknown]
  - Maternal exposure during pregnancy [Recovered/Resolved]
  - Breast feeding [Unknown]

NARRATIVE: CASE EVENT DATE: 202007
